FAERS Safety Report 13669012 (Version 3)
Quarter: 2017Q3

REPORT INFORMATION
  Report Type: Spontaneous
  Country: US (occurrence: US)
  Receive Date: 20170620
  Receipt Date: 20170818
  Transmission Date: 20171127
  Serious: No
  Sender: FDA-Public Use
  Company Number: US-GLAXOSMITHKLINE-US2017GSK091143

PATIENT
  Sex: Female
  Weight: 71.2 kg

DRUGS (1)
  1. ADVAIR DISKUS [Suspect]
     Active Substance: FLUTICASONE PROPIONATE\SALMETEROL XINAFOATE
     Indication: ASTHMA
     Dosage: UNK, U
     Dates: start: 20170524

REACTIONS (4)
  - Exposure during pregnancy [Unknown]
  - Dyspnoea [Unknown]
  - Underdose [Unknown]
  - Drug dose omission [Unknown]
